FAERS Safety Report 11862762 (Version 1)
Quarter: 2015Q4

REPORT INFORMATION
  Report Type: Spontaneous
  Country: US (occurrence: US)
  Receive Date: 20151223
  Receipt Date: 20151223
  Transmission Date: 20160305
  Serious: Yes (Other)
  Sender: FDA-Public Use
  Company Number: US-SHIRE-US201516440

PATIENT
  Sex: Female

DRUGS (2)
  1. LIALDA [Suspect]
     Active Substance: MESALAMINE
     Dosage: 7.2 G, UNKNOWN, 6 PILLS
     Route: 048
  2. LIALDA [Suspect]
     Active Substance: MESALAMINE
     Indication: INFECTIOUS COLITIS
     Dosage: 6 G, UNKNOWN, 5 PILLS
     Route: 048

REACTIONS (5)
  - Chest pain [Unknown]
  - Muscle strain [Unknown]
  - Prescribed overdose [Unknown]
  - Clostridium difficile infection [Unknown]
  - Product use issue [Unknown]
